FAERS Safety Report 8821335 (Version 1)
Quarter: 2012Q4

REPORT INFORMATION
  Report Type: 
  Country: US (occurrence: US)
  Receive Date: 20121002
  Receipt Date: 20121002
  Transmission Date: 20130627
  Serious: Yes (Other)
  Sender: FDA-Public Use
  Company Number: US-BAYER-2012-101569

PATIENT
  Age: 79 Year
  Sex: Female
  Weight: 78 kg

DRUGS (10)
  1. ALEVE CAPLET/TABLET,MIDOL EXTENDED RELIEF CAPLET [Suspect]
     Indication: PRODUCT USED FOR UNKNOWN INDICATION
     Dosage: 1 UNK, UNK
     Route: 048
     Dates: start: 201206, end: 20120925
  2. CELEXA [Concomitant]
  3. NAMENDA [Concomitant]
  4. EXELON [Concomitant]
  5. LORAZEPAM [Concomitant]
  6. REGLAN [Concomitant]
  7. COUMADIN [Concomitant]
  8. GAS X [Concomitant]
  9. PREVACID [Concomitant]
  10. TUMS [CALCIUM CARBONATE] [Concomitant]

REACTIONS (1)
  - Hallucination [Recovered/Resolved]
